FAERS Safety Report 20724380 (Version 1)
Quarter: 2022Q2

REPORT INFORMATION
  Report Type: Spontaneous
  Country: CA (occurrence: CA)
  Receive Date: 20220419
  Receipt Date: 20220419
  Transmission Date: 20220721
  Serious: Yes (Other)
  Sender: FDA-Public Use
  Company Number: CA-PFIZER INC-202200555142

PATIENT
  Age: 11 Year
  Sex: Male

DRUGS (4)
  1. LINEZOLID [Suspect]
     Active Substance: LINEZOLID
     Dosage: 300 MG, 1X/DAY
     Route: 048
  2. LINEZOLID [Suspect]
     Active Substance: LINEZOLID
     Dosage: 600 MG, 2X/DAY
     Route: 048
  3. METRONIDAZOLE [Suspect]
     Active Substance: METRONIDAZOLE
     Indication: Infection
     Dosage: 750 MG, 3X/DAY
  4. METRONIDAZOLE [Suspect]
     Active Substance: METRONIDAZOLE
     Dosage: 500 MG, 3X/DAY
     Route: 048

REACTIONS (1)
  - Paraesthesia [Recovered/Resolved]
